FAERS Safety Report 6042562-7 (Version None)
Quarter: 2009Q1

REPORT INFORMATION
  Report Type: 
  Country: None (occurrence: None)
  Receive Date: 20090119
  Receipt Date: 20090112
  Transmission Date: 20090719
  Serious: Yes (Other)
  Sender: FDA-Public Use
  Company Number: US-RANBAXY-2009US-20519

PATIENT

DRUGS (3)
  1. GABAPENTIN [Suspect]
     Indication: EPILEPSY
     Dosage: 400 MG
     Route: 048
     Dates: start: 20030101
  2. TRILEPTAL [Concomitant]
     Indication: DRUG USE FOR UNKNOWN INDICATION
     Dosage: 600 MG, UNK
  3. CLOBAZAM [Concomitant]
     Indication: DRUG USE FOR UNKNOWN INDICATION
     Dosage: UNK

REACTIONS (2)
  - CONVULSION [None]
  - DRUG INEFFECTIVE [None]
